FAERS Safety Report 16924527 (Version 1)
Quarter: 2019Q4

REPORT INFORMATION
  Report Type: Spontaneous
  Country: US (occurrence: US)
  Receive Date: 20191016
  Receipt Date: 20191016
  Transmission Date: 20200122
  Serious: Yes (Life-Threatening, Hospitalization)
  Sender: FDA-Public Use
  Company Number: US-MYLANLABS-2019M1097671

PATIENT
  Age: 90 Year
  Sex: Female

DRUGS (1)
  1. PREDNISONE. [Suspect]
     Active Substance: PREDNISONE
     Indication: ASTHMA
     Dosage: THREE WEEK TAPER
     Route: 065

REACTIONS (5)
  - Gastrointestinal haemorrhage [Unknown]
  - Strongyloidiasis [Unknown]
  - Asthma [Unknown]
  - Hypotension [Unknown]
  - Haemodynamic instability [Unknown]
